FAERS Safety Report 6105379-0 (Version None)
Quarter: 2009Q1

REPORT INFORMATION
  Report Type: 
  Country: None (occurrence: None)
  Receive Date: 20090306
  Receipt Date: 20090222
  Transmission Date: 20090719
  Serious: Yes (Other)
  Sender: FDA-Public Use
  Company Number: US-PFIZER INC-2009171837

PATIENT
  Sex: Female
  Weight: 69 kg

DRUGS (11)
  1. CHANTIX [Suspect]
     Indication: SMOKING CESSATION THERAPY
     Dosage: 0.5 MG, UNK
     Dates: start: 20090208, end: 20090221
  2. CYMBALTA [Concomitant]
     Dosage: UNK
  3. REGLAN [Concomitant]
     Dosage: UNK
  4. PREMARIN [Concomitant]
     Dosage: UNK
  5. PRILOSEC [Concomitant]
     Dosage: UNK
  6. TALWIN [Concomitant]
     Dosage: UNK
  7. FLEXERIL [Concomitant]
     Dosage: UNK
  8. VITAMIN B-12 [Concomitant]
     Dosage: UNK
  9. K-DUR [Concomitant]
     Dosage: UNK
  10. THYROID TAB [Concomitant]
     Dosage: UNK
  11. VALIUM [Concomitant]
     Dosage: UNK

REACTIONS (1)
  - ANXIETY [None]
